FAERS Safety Report 24610964 (Version 1)
Quarter: 2024Q4

REPORT INFORMATION
  Report Type: Spontaneous
  Country: PR (occurrence: PR)
  Receive Date: 20241112
  Receipt Date: 20241112
  Transmission Date: 20250115
  Serious: Yes (Hospitalization, Other)
  Sender: JOHNSON AND JOHNSON
  Company Number: US-BAYER-2024A159946

PATIENT
  Age: 81 Year
  Sex: Female

DRUGS (2)
  1. RIVAROXABAN [Suspect]
     Active Substance: RIVAROXABAN
     Indication: Anticoagulant therapy
     Dosage: UNK
     Route: 048
  2. ASPIRIN [Suspect]
     Active Substance: ASPIRIN
     Indication: Antiplatelet therapy
     Route: 065

REACTIONS (7)
  - Spinal subdural haematoma [Recovered/Resolved]
  - Paraplegia [Unknown]
  - Atrial fibrillation [Unknown]
  - Areflexia [Unknown]
  - Anal sphincter atony [Unknown]
  - Anaesthesia [Unknown]
  - Spinal cord compression [Recovering/Resolving]
